FAERS Safety Report 9426531 (Version 1)
Quarter: 2013Q3

REPORT INFORMATION
  Report Type: Report from Study
  Country: DE (occurrence: DE)
  Receive Date: 20130730
  Receipt Date: 20130730
  Transmission Date: 20140515
  Serious: Yes (Hospitalization)
  Sender: FDA-Public Use
  Company Number: DE-CELGENEUS-062-21660-13072383

PATIENT
  Age: 72 Year
  Sex: 0
  Weight: 71 kg

DRUGS (2)
  1. ABRAXANE [Suspect]
     Indication: BREAST CANCER METASTATIC
     Route: 041
     Dates: start: 20130606, end: 20130704
  2. ANASTRAD [Concomitant]
     Indication: BREAST CANCER
     Route: 065
     Dates: start: 201109

REACTIONS (2)
  - Lymphoedema [Recovered/Resolved]
  - Hyperglycaemia [Recovered/Resolved]
